FAERS Safety Report 5094722-X (Version None)
Quarter: 2006Q3

REPORT INFORMATION
  Report Type: 
  Country: None (occurrence: None)
  Receive Date: 20060731
  Receipt Date: 20060410
  Transmission Date: 20061208
  Serious: No
  Sender: FDA-Public Use
  Company Number: 2006PV011953

PATIENT
  Age: 60 Year
  Sex: Male
  Weight: 83.9154 kg

DRUGS (3)
  1. BYETTA [Suspect]
     Indication: DIABETES MELLITUS NON-INSULIN-DEPENDENT
     Dosage: 10 MCG;BID; SC, SEE IMAGE
     Route: 058
     Dates: start: 20060101, end: 20060301
  2. BYETTA [Suspect]
     Indication: DIABETES MELLITUS NON-INSULIN-DEPENDENT
     Dosage: 10 MCG;BID; SC, SEE IMAGE
     Route: 058
     Dates: start: 20060301
  3. AVANDAMET [Suspect]
     Indication: DIABETES MELLITUS NON-INSULIN-DEPENDENT
     Dosage: 500 MG; BID; PO
     Route: 048
     Dates: start: 20060101, end: 20060301

REACTIONS (5)
  - BLOOD GLUCOSE DECREASED [None]
  - HYPERHIDROSIS [None]
  - NAUSEA [None]
  - TREMOR [None]
  - WEIGHT DECREASED [None]
